FAERS Safety Report 7552976-1 (Version None)
Quarter: 2011Q2

REPORT INFORMATION
  Report Type: 
  Country: None (occurrence: None)
  Receive Date: 20110616
  Receipt Date: 20110610
  Transmission Date: 20111010
  Serious: Yes (Other)
  Sender: FDA-Public Use
  Company Number: GXBR2011US02104

PATIENT
  Sex: Female
  Weight: 44.444 kg

DRUGS (1)
  1. OMNITROPE [Suspect]
     Indication: GROWTH HORMONE DEFICIENCY
     Dosage: 2 MG, QHS
     Route: 058
     Dates: start: 20100916

REACTIONS (2)
  - EPILEPSY [None]
  - CONVULSION [None]
